FAERS Safety Report 6681867-3 (Version None)
Quarter: 2010Q2

REPORT INFORMATION
  Report Type: 
  Country: None (occurrence: None)
  Receive Date: 20100414
  Receipt Date: 20100330
  Transmission Date: 20101027
  Serious: Yes (Other)
  Sender: FDA-Public Use
  Company Number: ES-GENENTECH-300300

PATIENT
  Sex: Male

DRUGS (3)
  1. XOLAIR [Suspect]
     Indication: ASTHMA
     Dosage: 375 MG, 1/MONTH
     Route: 058
  2. XOLAIR [Suspect]
     Dosage: 375 MG, 1/MONTH
     Route: 065
     Dates: start: 20100310
  3. CONCOMITANT DRUG [Concomitant]
     Indication: DRUG USE FOR UNKNOWN INDICATION
     Dosage: UNK
     Route: 065

REACTIONS (4)
  - NAUSEA [None]
  - PRESYNCOPE [None]
  - RASH [None]
  - VOMITING [None]
